FAERS Safety Report 6834638-9 (Version None)
Quarter: 2010Q3

REPORT INFORMATION
  Report Type: 
  Country: None (occurrence: None)
  Receive Date: 20100712
  Receipt Date: 20070416
  Transmission Date: 20110219
  Serious: No
  Sender: FDA-Public Use
  Company Number: US-PFIZER INC-2007031220

PATIENT
  Sex: Male
  Weight: 72.57 kg

DRUGS (10)
  1. CHANTIX [Suspect]
     Indication: SMOKING CESSATION THERAPY
     Route: 048
     Dates: start: 20070301
  2. PLAVIX [Concomitant]
  3. DYNACIRC [Concomitant]
  4. MICARDIS [Concomitant]
  5. SPIRIVA [Concomitant]
  6. CRESTOR [Concomitant]
  7. ACTONEL [Concomitant]
  8. ACETYLSALICYLIC ACID [Concomitant]
  9. MULTI-VITAMINS [Concomitant]
  10. ORUDIS [Concomitant]

REACTIONS (2)
  - DECREASED APPETITE [None]
  - NAUSEA [None]
